FAERS Safety Report 8401172-4 (Version None)
Quarter: 2012Q2

REPORT INFORMATION
  Report Type: 
  Country: None (occurrence: None)
  Receive Date: 20120529
  Receipt Date: 20120529
  Transmission Date: 20120825
  Serious: Yes (Other)
  Sender: FDA-Public Use
  Company Number: None

PATIENT
  Age: 44 Year
  Sex: Male
  Weight: 70.3075 kg

DRUGS (2)
  1. OXYCODONE HYDROCHLORIDE [Suspect]
     Indication: NECK INJURY
     Dosage: 10 MGS 2 PO
     Route: 048
     Dates: start: 20111110, end: 20111124
  2. OXYCODONE HYDROCHLORIDE [Suspect]
     Indication: BACK INJURY
     Dosage: 10 MGS 2 PO
     Route: 048
     Dates: start: 20111110, end: 20111124

REACTIONS (2)
  - PULMONARY FUNCTION TEST DECREASED [None]
  - WRONG TECHNIQUE IN DRUG USAGE PROCESS [None]
